FAERS Safety Report 5580032-0 (Version None)
Quarter: 2008Q1

REPORT INFORMATION
  Report Type: 
  Country: None (occurrence: None)
  Receive Date: 20080103
  Receipt Date: 20071228
  Transmission Date: 20080703
  Serious: Yes (Death)
  Sender: FDA-Public Use
  Company Number: JP-AVENTIS-200713549JP

PATIENT
  Age: 70 Year
  Sex: Male

DRUGS (4)
  1. TAXOTERE [Suspect]
     Dosage: DOSE: 50 MG/M2
  2. TAXOTERE [Suspect]
  3. ESTRAMUSTINE [Concomitant]
  4. CORTICOSTEROIDS [Concomitant]

REACTIONS (1)
  - RENAL FAILURE ACUTE [None]
